FAERS Safety Report 19464170 (Version 2)
Quarter: 2021Q2

REPORT INFORMATION
  Report Type: Spontaneous
  Country: US (occurrence: US)
  Receive Date: 20210625
  Receipt Date: 20210626
  Transmission Date: 20210717
  Serious: Yes (Other)
  Sender: FDA-Public Use
  Company Number: US-ENDO PHARMACEUTICALS INC-2021-002889

PATIENT
  Age: 62 Year
  Sex: Male

DRUGS (2)
  1. RANITIDINE. [Suspect]
     Active Substance: RANITIDINE
     Indication: GASTROOESOPHAGEAL REFLUX DISEASE
     Dosage: 150 MG, DAILY
     Route: 065
     Dates: start: 200101, end: 201512
  2. RANITIDINE HYDROCHLORIDE. [Suspect]
     Active Substance: RANITIDINE HYDROCHLORIDE
     Indication: GASTROOESOPHAGEAL REFLUX DISEASE
     Dosage: UNK UNK, DAILY
     Route: 065
     Dates: start: 200101, end: 201512

REACTIONS (1)
  - Bladder cancer [Unknown]

NARRATIVE: CASE EVENT DATE: 20131001
